FAERS Safety Report 6038034-6 (Version None)
Quarter: 2009Q1

REPORT INFORMATION
  Report Type: 
  Country: None (occurrence: None)
  Receive Date: 20090113
  Receipt Date: 20090113
  Transmission Date: 20090719
  Serious: Yes (Other)
  Sender: FDA-Public Use
  Company Number: None

PATIENT
  Sex: Male
  Weight: 160 kg

DRUGS (1)
  1. KLONOPIN [Suspect]
     Indication: AFFECTIVE DISORDER
     Dosage: .5 MG AMNI PO 1 MG 5PM AND BED PO
     Route: 048
     Dates: start: 20050101, end: 20080111

REACTIONS (1)
  - LEGAL PROBLEM [None]
